FAERS Safety Report 10831818 (Version 2)
Quarter: 2015Q1

REPORT INFORMATION
  Report Type: Spontaneous
  Country: US (occurrence: US)
  Receive Date: 20150219
  Receipt Date: 20150225
  Transmission Date: 20150721
  Serious: Yes (Hospitalization, Other)
  Sender: FDA-Public Use
  Company Number: US-TAKEDA-2015TUS001982

PATIENT
  Age: 50 Year
  Sex: Female

DRUGS (2)
  1. TPN                                /06443901/ [Concomitant]
     Indication: SHORT-BOWEL SYNDROME
     Dosage: UNK
     Route: 065
  2. ENTYVIO [Suspect]
     Active Substance: VEDOLIZUMAB
     Indication: PRODUCT USED FOR UNKNOWN INDICATION
     Dosage: UNK
     Route: 065

REACTIONS (2)
  - Histiocytosis haematophagic [Unknown]
  - Bacterial sepsis [Unknown]
